FAERS Safety Report 22252857 (Version 2)
Quarter: 2023Q2

REPORT INFORMATION
  Report Type: Spontaneous
  Country: US (occurrence: US)
  Receive Date: 20230426
  Receipt Date: 20230630
  Transmission Date: 20230722
  Serious: Yes (Other)
  Sender: FDA-Public Use
  Company Number: US-002147023-NVSC2023US093978

PATIENT
  Sex: Male
  Weight: 94.4 kg

DRUGS (1)
  1. KYMRIAH [Suspect]
     Active Substance: TISAGENLECLEUCEL
     Indication: Diffuse large B-cell lymphoma
     Dosage: 3.48E CAR- POSITIVE VIABLE T-CELLS, ONCE/SINGLE
     Route: 042
     Dates: start: 20230413, end: 20230413

REACTIONS (1)
  - Immune effector cell-associated neurotoxicity syndrome [Unknown]
